FAERS Safety Report 5838746-0 (Version None)
Quarter: 2008Q3

REPORT INFORMATION
  Report Type: 
  Country: None (occurrence: None)
  Receive Date: 20080808
  Receipt Date: 20080804
  Transmission Date: 20090109
  Serious: Yes (Death)
  Sender: FDA-Public Use
  Company Number: US-JNJFOC-20080405362

PATIENT
  Sex: Female
  Weight: 40.82 kg

DRUGS (8)
  1. DURAGESIC-100 [Suspect]
     Route: 062
  2. DURAGESIC-100 [Suspect]
     Route: 062
  3. DURAGESIC-100 [Suspect]
     Indication: PAIN
     Route: 062
  4. ALBUTEROL [Concomitant]
  5. LORTAB [Concomitant]
     Indication: PAIN
  6. MAGNESIUM OXIDE [Concomitant]
  7. HUMULIN R [Concomitant]
  8. LANTUS [Concomitant]
     Route: 058

REACTIONS (3)
  - DERMATITIS ALLERGIC [None]
  - DRUG TOXICITY [None]
  - INCORRECT DOSE ADMINISTERED [None]
